FAERS Safety Report 22635581 (Version 1)
Quarter: 2023Q2

REPORT INFORMATION
  Report Type: Spontaneous
  Country: UA (occurrence: UA)
  Receive Date: 20230623
  Receipt Date: 20230623
  Transmission Date: 20230722
  Serious: Yes (Death)
  Sender: FDA-Public Use
  Company Number: UA-MYLANLABS-2023M1065998

PATIENT
  Age: 51 Year
  Sex: Male

DRUGS (3)
  1. PRETOMANID [Suspect]
     Active Substance: PRETOMANID
     Indication: Disseminated tuberculosis
     Dosage: 200 MILLIGRAM, QD
     Route: 048
     Dates: start: 20230512, end: 20230521
  2. BEDAQUILINE [Suspect]
     Active Substance: BEDAQUILINE
     Indication: Disseminated tuberculosis
     Dosage: 100 MILLIGRAM, QID
     Route: 048
     Dates: start: 20230512, end: 20230521
  3. LIZOMAC [Concomitant]
     Indication: Disseminated tuberculosis
     Dosage: 600 MILLIGRAM, QD
     Route: 065
     Dates: start: 20230512, end: 20230521

REACTIONS (1)
  - Death [Fatal]

NARRATIVE: CASE EVENT DATE: 20230522
